FAERS Safety Report 17025739 (Version 1)
Quarter: 2019Q4

REPORT INFORMATION
  Report Type: Report from Study
  Country: GB (occurrence: GB)
  Receive Date: 20191113
  Receipt Date: 20191113
  Transmission Date: 20200122
  Serious: Yes (Other)
  Sender: FDA-Public Use
  Company Number: PHHY2014GB071195

PATIENT
  Age: 47 Year
  Sex: Male

DRUGS (1)
  1. GILENYA [Suspect]
     Active Substance: FINGOLIMOD HYDROCHLORIDE
     Indication: MULTIPLE SCLEROSIS
     Dosage: UNK, QD
     Route: 048
     Dates: start: 20131119

REACTIONS (8)
  - Lymphopenia [Unknown]
  - Choking [Unknown]
  - Aspartate aminotransferase increased [Unknown]
  - Pain in extremity [Recovered/Resolved]
  - Urinary hesitation [Not Recovered/Not Resolved]
  - Alanine aminotransferase increased [Unknown]
  - White blood cell count decreased [Unknown]
  - Urinary tract infection [Recovered/Resolved]

NARRATIVE: CASE EVENT DATE: 20140121
